FAERS Safety Report 10279520 (Version 1)
Quarter: 2014Q3

REPORT INFORMATION
  Report Type: Spontaneous
  Country: FR (occurrence: None)
  Receive Date: 20140701
  Receipt Date: 20140701
  Transmission Date: 20150326
  Serious: Yes (Death, Life-Threatening, Other)
  Sender: FDA-Public Use
  Company Number: SYM-2014-22715

PATIENT
  Age: 20 Year
  Sex: Female

DRUGS (14)
  1. ERYTHROMYCIN (ERYTHROMYCIN) [Suspect]
     Active Substance: ERYTHROMYCIN
     Indication: PRODUCT USED FOR UNKNOWN INDICATION
     Route: 042
     Dates: start: 20140228, end: 20140320
  2. AUGMENTIN [Suspect]
     Active Substance: AMOXICILLIN\CLAVULANATE POTASSIUM
     Indication: PRODUCT USED FOR UNKNOWN INDICATION
     Route: 042
     Dates: start: 20140227, end: 20140228
  3. DEPAKINE CHRONO (ERGENYL CHRONO) (VALPROIC ACID, VALPROATE SODIUM) [Concomitant]
  4. FORTUM (CEFTAZIDIME) (INJECTION) (CEFTAZIDIME) [Suspect]
     Active Substance: CEFTAZIDIME
     Indication: PRODUCT USED FOR UNKNOWN INDICATION
     Route: 042
     Dates: start: 20140312, end: 20140320
  5. SCOPODERM (HYOSCINE) [Concomitant]
  6. TAZOCILLINE (PIP/TAZO)(PIPERACILLIN SODIUM, TAZOBACTAM SODIUM) [Suspect]
     Active Substance: PIPERACILLIN SODIUM\TAZOBACTAM SODIUM
     Indication: PRODUCT USED FOR UNKNOWN INDICATION
     Route: 042
     Dates: start: 20140301, end: 20140313
  7. SABRIL (VIGABATRIN) [Concomitant]
  8. INSULIN (INSULIN) [Concomitant]
     Active Substance: INSULIN NOS
  9. RIVOTRIL [Concomitant]
     Active Substance: CLONAZEPAM
  10. AMIKACIN (AMIKACIN) [Suspect]
     Active Substance: AMIKACIN
     Indication: PRODUCT USED FOR UNKNOWN INDICATION
     Route: 042
     Dates: start: 20140301, end: 20140315
  11. FLAGYL [Suspect]
     Active Substance: METRONIDAZOLE\METRONIDAZOLE HYDROCHLORIDE
     Indication: PRODUCT USED FOR UNKNOWN INDICATION
     Route: 048
     Dates: start: 20140316, end: 20140327
  12. CEFEPIME [Suspect]
     Active Substance: CEFEPIME\CEFEPIME HYDROCHLORIDE
     Indication: PRODUCT USED FOR UNKNOWN INDICATION
     Route: 042
     Dates: start: 20140320, end: 20140325
  13. KEPPRA [Concomitant]
     Active Substance: LEVETIRACETAM
  14. URBANYL (CLOBAZAM) [Concomitant]

REACTIONS (17)
  - Respiratory tract infection [None]
  - Hypotension [None]
  - Systemic candida [None]
  - Sepsis [None]
  - Urinary tract infection [None]
  - Vulvovaginal mycotic infection [None]
  - Pseudomonas infection [None]
  - Bronchial obstruction [None]
  - Respiratory tract infection bacterial [None]
  - Stenotrophomonas infection [None]
  - Staphylococcal sepsis [None]
  - Blood culture positive [None]
  - Thrombophlebitis [None]
  - Tachycardia [None]
  - Cardio-respiratory arrest [None]
  - Fungal infection [None]
  - Clostridium test positive [None]

NARRATIVE: CASE EVENT DATE: 20140428
